FAERS Safety Report 6929833-4 (Version None)
Quarter: 2010Q3

REPORT INFORMATION
  Report Type: 
  Country: None (occurrence: None)
  Receive Date: 20100813
  Receipt Date: 20100803
  Transmission Date: 20110219
  Serious: Yes (Other)
  Sender: FDA-Public Use
  Company Number: B0669267A

PATIENT
  Age: 41 Year
  Sex: Female

DRUGS (5)
  1. EPZICOM [Suspect]
     Indication: HIV INFECTION
     Dosage: ORAL
     Route: 048
     Dates: start: 20071101, end: 20080301
  2. ZIDOVUDINE [Suspect]
     Indication: HIV INFECTION
     Dosage: ORAL
     Route: 048
     Dates: start: 20010101, end: 20071101
  3. NELFINAVIR MESYLATE [Concomitant]
  4. LAMIVUDINE-HIV [Concomitant]
  5. INSULIN [Concomitant]

REACTIONS (2)
  - ANAEMIA [None]
  - HYPOGLYCAEMIA [None]
